FAERS Safety Report 9224703 (Version 1)
Quarter: 2013Q2

REPORT INFORMATION
  Report Type: Spontaneous
  Country: US (occurrence: US)
  Receive Date: 20130411
  Receipt Date: 20130411
  Transmission Date: 20140414
  Serious: Yes (Other)
  Sender: FDA-Public Use
  Company Number: US-PFIZER INC-2013112032

PATIENT
  Sex: 0

DRUGS (4)
  1. CELEBREX [Suspect]
     Dosage: UNK
  2. NORVASC [Suspect]
     Dosage: UNK
  3. LIPITOR [Suspect]
     Dosage: UNK
  4. NEURONTIN [Suspect]
     Dosage: UNK

REACTIONS (1)
  - Arthropathy [Unknown]
